FAERS Safety Report 5787078-8 (Version None)
Quarter: 2008Q2

REPORT INFORMATION
  Report Type: 
  Country: None (occurrence: None)
  Receive Date: 20080618
  Receipt Date: 20080606
  Transmission Date: 20081010
  Serious: Yes (Death)
  Sender: FDA-Public Use
  Company Number: 2008AL005080

PATIENT
  Age: 62 Year
  Sex: Female

DRUGS (1)
  1. DIGOXIN [Suspect]
     Dosage: 0.125 MG,DAILY,PO
     Route: 048

REACTIONS (3)
  - ANOXIC ENCEPHALOPATHY [None]
  - COUGH [None]
  - RENAL FAILURE [None]
